FAERS Safety Report 5133394-2 (Version None)
Quarter: 2006Q4

REPORT INFORMATION
  Report Type: 
  Country: None (occurrence: None)
  Receive Date: 20061020
  Receipt Date: 20061020
  Transmission Date: 20070319
  Serious: Yes (Other)
  Sender: FDA-Public Use
  Company Number: None

PATIENT

DRUGS (4)
  1. XYLOCAINE [Suspect]
     Indication: DIAGNOSTIC PROCEDURE
     Dates: start: 20061015, end: 20061018
  2. XYLOCAINE [Suspect]
     Indication: LOCAL ANAESTHESIA
     Dates: start: 20061015, end: 20061018
  3. OXYMETAZOLINE HCL [Suspect]
     Indication: DIAGNOSTIC PROCEDURE
     Dates: start: 20061015, end: 20061018
  4. OXYMETAZOLINE HCL [Suspect]
     Indication: LOCAL ANAESTHESIA
     Dates: start: 20061015, end: 20061018

REACTIONS (2)
  - NASAL DISCOMFORT [None]
  - PHARMACEUTICAL PRODUCT COMPLAINT [None]
